FAERS Safety Report 11298619 (Version 1)
Quarter: 2015Q3

REPORT INFORMATION
  Report Type: Spontaneous
  Country: US (occurrence: US)
  Receive Date: 20150722
  Receipt Date: 20150722
  Transmission Date: 20151125
  Serious: No
  Sender: FDA-Public Use
  Company Number: US-ELI_LILLY_AND_COMPANY-US201202000552

PATIENT
  Age: 65 Year
  Sex: Male

DRUGS (6)
  1. EFFIENT [Suspect]
     Active Substance: PRASUGREL HYDROCHLORIDE
     Indication: STENT PLACEMENT
     Dosage: 10 DF, UNK
     Dates: start: 20111201, end: 20120126
  2. LISINOPRIL. [Concomitant]
     Active Substance: LISINOPRIL
     Dosage: 20/25MG
  3. SIMVASTATIN. [Concomitant]
     Active Substance: SIMVASTATIN
     Dosage: 80 MG, UNK
  4. INSULIN [Concomitant]
     Active Substance: INSULIN NOS
     Dosage: 70 MG, UNK
  5. ISORBIDE [Concomitant]
     Active Substance: ISOSORBIDE
     Dosage: 30 MG, UNK
  6. INSULIN [Concomitant]
     Active Substance: INSULIN NOS
     Dosage: 30 MG, UNK

REACTIONS (3)
  - Pain [Unknown]
  - Headache [Recovered/Resolved]
  - Angina pectoris [Unknown]

NARRATIVE: CASE EVENT DATE: 201201
